FAERS Safety Report 5037459-5 (Version None)
Quarter: 2006Q2

REPORT INFORMATION
  Report Type: 
  Country: None (occurrence: None)
  Receive Date: 20060628
  Receipt Date: 20050615
  Transmission Date: 20061013
  Serious: No
  Sender: FDA-Public Use
  Company Number: US-GLAXOSMITHKLINE-A0562806A

PATIENT
  Age: 46 Year
  Sex: Female

DRUGS (4)
  1. ALBUTEROL [Suspect]
     Indication: ASTHMA
     Route: 055
     Dates: start: 20050601
  2. SEREVENT [Suspect]
     Indication: ASTHMA
     Dosage: 1PUFF TWICE PER DAY
     Route: 055
     Dates: start: 19940101
  3. SEREVENT [Suspect]
     Dosage: 1PUFF TWICE PER DAY
     Route: 055
     Dates: start: 20040101
  4. FLOVENT [Concomitant]

REACTIONS (17)
  - BLOOD PRESSURE DECREASED [None]
  - DIZZINESS [None]
  - DRUG INEFFECTIVE [None]
  - DRY EYE [None]
  - DYSPHONIA [None]
  - EYE PAIN [None]
  - HEADACHE [None]
  - HYPERTENSION [None]
  - NECK PAIN [None]
  - OCULAR HYPERAEMIA [None]
  - PALPITATIONS [None]
  - PHARYNGEAL ULCERATION [None]
  - POSTNASAL DRIP [None]
  - RHINORRHOEA [None]
  - SHOULDER PAIN [None]
  - TINNITUS [None]
  - WHEEZING [None]
